FAERS Safety Report 16990055 (Version 2)
Quarter: 2019Q4

REPORT INFORMATION
  Report Type: Report from Study
  Country: US (occurrence: US)
  Receive Date: 20191104
  Receipt Date: 20191202
  Transmission Date: 20200122
  Serious: Yes (Hospitalization, Other)
  Sender: FDA-Public Use
  Company Number: US-HELSINN-2019US019744

PATIENT
  Age: 78 Year
  Sex: Female

DRUGS (1)
  1. VALCHLOR [Suspect]
     Active Substance: MECHLORETHAMINE
     Indication: CUTANEOUS T-CELL LYMPHOMA
     Dosage: THIN FILM, QD
     Route: 061

REACTIONS (4)
  - Oedema [Unknown]
  - Dysstasia [Unknown]
  - Cellulitis [Unknown]
  - Gait inability [Unknown]

NARRATIVE: CASE EVENT DATE: 201909
